FAERS Safety Report 5063731-9 (Version None)
Quarter: 2006Q3

REPORT INFORMATION
  Report Type: 
  Country: None (occurrence: None)
  Receive Date: 20060724
  Receipt Date: 20060712
  Transmission Date: 20061208
  Serious: Yes (Hospitalization)
  Sender: FDA-Public Use
  Company Number: 2006086216

PATIENT
  Sex: Female
  Weight: 49.8957 kg

DRUGS (1)
  1. VISINE-A [Suspect]
     Indication: EYE PRURITUS
     Dosage: 2 DROPS IN EACH EYE, THEN 1 DROP IN EACH, OPHTHALMIC
     Route: 047
     Dates: start: 20060709, end: 20060711

REACTIONS (4)
  - BLOOD PRESSURE INCREASED [None]
  - HEADACHE [None]
  - HYPOAESTHESIA [None]
  - HYPOAESTHESIA FACIAL [None]
